FAERS Safety Report 8307308-8 (Version None)
Quarter: 2012Q2

REPORT INFORMATION
  Report Type: 
  Country: None (occurrence: None)
  Receive Date: 20120424
  Receipt Date: 20120413
  Transmission Date: 20120825
  Serious: Yes (Other)
  Sender: FDA-Public Use
  Company Number: JP-VERTEX PHARMACEUTICALS INC.-AE-2012-005590

PATIENT
  Age: 55 Year
  Sex: Male

DRUGS (19)
  1. TELAVIC (TELAPREVIR) [Suspect]
     Route: 048
     Dates: start: 20120309, end: 20120320
  2. REBETOL [Concomitant]
     Route: 048
     Dates: start: 20120310, end: 20120327
  3. PROHEPARUM [Concomitant]
     Route: 048
  4. ZOLPIDEM [Concomitant]
     Route: 048
     Dates: start: 20120222, end: 20120308
  5. PEG-INTRON [Concomitant]
     Route: 051
     Dates: start: 20120404
  6. REBETOL [Concomitant]
     Indication: HEPATITIS C
     Route: 048
     Dates: start: 20120229, end: 20120305
  7. REBETOL [Concomitant]
     Route: 048
     Dates: start: 20120306, end: 20120309
  8. EXFORGE [Concomitant]
     Route: 048
  9. LENDORMIN D [Concomitant]
     Route: 048
     Dates: start: 20120302, end: 20120403
  10. URSO 250 [Concomitant]
     Route: 048
  11. PROMACTA [Concomitant]
     Route: 048
  12. MIYA BM [Concomitant]
     Route: 048
  13. ALLEGRA [Concomitant]
     Route: 048
  14. IPD [Concomitant]
     Route: 048
  15. TELAVIC (TELAPREVIR) [Suspect]
     Route: 048
     Dates: start: 20120321, end: 20120327
  16. LANSOPRAZOLE [Concomitant]
     Route: 048
  17. TELAVIC (TELAPREVIR) [Suspect]
     Indication: HEPATITIS C
     Route: 048
     Dates: start: 20120229, end: 20120308
  18. REBETOL [Concomitant]
     Route: 048
     Dates: start: 20120404
  19. PEG-INTRON [Concomitant]
     Indication: HEPATITIS C
     Route: 051
     Dates: start: 20120229, end: 20120321

REACTIONS (1)
  - DECREASED APPETITE [None]
